FAERS Safety Report 8266265-3 (Version None)
Quarter: 2012Q1

REPORT INFORMATION
  Report Type: 
  Country: None (occurrence: None)
  Receive Date: 20120327
  Receipt Date: 20100423
  Transmission Date: 20120608
  Serious: Yes (Hospitalization)
  Sender: FDA-Public Use
  Company Number: PHHY2010US26371

PATIENT
  Age: 51 Year
  Sex: Female

DRUGS (1)
  1. GLEEVEC [Suspect]
     Indication: MALIGNANT NERVOUS SYSTEM NEOPLASM
     Dosage: 400 MG, BID
     Dates: end: 20100401

REACTIONS (3)
  - NEOPLASM PROGRESSION [None]
  - NERVOUS SYSTEM NEOPLASM [None]
  - SURGERY [None]
